FAERS Safety Report 6891545-3 (Version None)
Quarter: 2010Q3

REPORT INFORMATION
  Report Type: 
  Country: None (occurrence: None)
  Receive Date: 20100731
  Receipt Date: 20070927
  Transmission Date: 20110219
  Serious: No
  Sender: FDA-Public Use
  Company Number: US-PFIZER INC-2007055016

PATIENT
  Sex: Female
  Weight: 55 kg

DRUGS (6)
  1. NEURONTIN [Suspect]
     Indication: SPINAL COLUMN STENOSIS
     Dates: start: 20050720, end: 20051001
  2. NEURONTIN [Suspect]
     Indication: NERVE INJURY
  3. NEURONTIN [Suspect]
     Indication: PARAESTHESIA
  4. LYRICA [Suspect]
     Indication: SPINAL COLUMN STENOSIS
     Dates: start: 20051018, end: 20060101
  5. LYRICA [Suspect]
     Indication: NERVE INJURY
  6. DARVOCET [Concomitant]
     Indication: PAIN

REACTIONS (4)
  - DRUG INEFFECTIVE [None]
  - INCREASED APPETITE [None]
  - LETHARGY [None]
  - WEIGHT INCREASED [None]
